FAERS Safety Report 7729420-4 (Version None)
Quarter: 2011Q3

REPORT INFORMATION
  Report Type: 
  Country: None (occurrence: None)
  Receive Date: 20110831
  Receipt Date: 20110831
  Transmission Date: 20111222
  Serious: Yes (Hospitalization)
  Sender: FDA-Public Use
  Company Number: None

PATIENT
  Sex: Male
  Weight: 108 kg

DRUGS (7)
  1. SIMVASTATIN [Concomitant]
  2. CISPLATIN [Suspect]
     Dosage: 170 MG
  3. OXYCODONE HCL [Concomitant]
  4. TAXOL [Suspect]
     Dosage: 408 MG
  5. ASPIRIN [Concomitant]
  6. ERBITUX [Suspect]
     Dosage: 1476 MG
  7. LISINOPRIL [Concomitant]

REACTIONS (1)
  - CORONARY ARTERY THROMBOSIS [None]
